FAERS Safety Report 8738311 (Version 2)
Quarter: 2013Q4

REPORT INFORMATION
  Report Type: Report from Study
  Country: US (occurrence: US)
  Receive Date: 20120823
  Receipt Date: 20131101
  Transmission Date: 20140711
  Serious: Yes (Other)
  Sender: FDA-Public Use
  Company Number: US-MERCK-1208USA004171

PATIENT
  Sex: Female

DRUGS (4)
  1. PEGINTRON [Suspect]
     Indication: HEPATITIS C
     Dosage: UNK
     Dates: start: 20060101, end: 20061201
  2. PEGINTRON [Suspect]
     Dosage: UNK
     Dates: start: 20120224, end: 20120527
  3. REBETOL [Suspect]
     Indication: HEPATITIS C
     Dosage: UNK
     Dates: start: 20060101, end: 20061201
  4. REBETOL [Suspect]
     Dosage: UNK
     Dates: start: 20120224, end: 20120527

REACTIONS (1)
  - Hypothyroidism [Unknown]
